FAERS Safety Report 10771349 (Version 2)
Quarter: 2015Q2

REPORT INFORMATION
  Report Type: Report from Study
  Country: US (occurrence: US)
  Receive Date: 20150206
  Receipt Date: 20150528
  Transmission Date: 20150821
  Serious: Yes (Other)
  Sender: FDA-Public Use
  Company Number: US-SA-2014SA125218

PATIENT
  Age: 44 Year
  Sex: Male

DRUGS (2)
  1. AUBAGIO [Suspect]
     Active Substance: TERIFLUNOMIDE
     Indication: MULTIPLE SCLEROSIS
     Route: 048
     Dates: start: 20140818, end: 20140908
  2. AUBAGIO [Suspect]
     Active Substance: TERIFLUNOMIDE
     Indication: MULTIPLE SCLEROSIS
     Route: 048

REACTIONS (8)
  - Physical disability [Not Recovered/Not Resolved]
  - Hypoaesthesia [Recovering/Resolving]
  - Multiple sclerosis relapse [Recovering/Resolving]
  - Urinary incontinence [Unknown]
  - Drug dose omission [Unknown]
  - Paraesthesia [Recovering/Resolving]
  - Muscular weakness [Recovering/Resolving]
  - Stress [Unknown]

NARRATIVE: CASE EVENT DATE: 2014
